FAERS Safety Report 5782927-1 (Version None)
Quarter: 2008Q2

REPORT INFORMATION
  Report Type: 
  Country: None (occurrence: None)
  Receive Date: 20080624
  Receipt Date: 20080619
  Transmission Date: 20081010
  Serious: Yes (Other)
  Sender: FDA-Public Use
  Company Number: JP-BRISTOL-MYERS SQUIBB COMPANY-13863824

PATIENT
  Age: 24 Year
  Sex: Female

DRUGS (14)
  1. ENDOXAN [Suspect]
     Indication: T-CELL TYPE ACUTE LEUKAEMIA
     Dates: start: 19950801, end: 19970501
  2. VINCRISTINE SULFATE [Suspect]
     Indication: T-CELL TYPE ACUTE LEUKAEMIA
     Dates: start: 19950801, end: 19970501
  3. METHOTREXATE [Suspect]
     Indication: T-CELL TYPE ACUTE LEUKAEMIA
     Route: 039
     Dates: start: 19950801, end: 19970501
  4. METHOTREXATE [Suspect]
     Indication: LEUKAEMIA RECURRENT PROPHYLAXIS
     Route: 039
     Dates: start: 19950801, end: 19970501
  5. PREDNISOLONE [Suspect]
     Indication: T-CELL TYPE ACUTE LEUKAEMIA
     Dates: start: 19950801, end: 19970501
  6. DEXAMETHASONE TAB [Suspect]
     Indication: T-CELL TYPE ACUTE LEUKAEMIA
     Dates: start: 19950801, end: 19970501
  7. DAUNORUBICIN HCL [Suspect]
     Indication: T-CELL TYPE ACUTE LEUKAEMIA
     Dates: start: 19950801, end: 19970501
  8. PIRARUBICIN HCL [Suspect]
     Indication: T-CELL TYPE ACUTE LEUKAEMIA
     Dates: start: 19950801, end: 19970501
  9. L-ASPARAGINASE [Suspect]
     Indication: T-CELL TYPE ACUTE LEUKAEMIA
     Dates: start: 19950801, end: 19970501
  10. CYTARABINE [Suspect]
     Indication: T-CELL TYPE ACUTE LEUKAEMIA
     Route: 037
     Dates: start: 19950801, end: 19970501
  11. CYTARABINE [Suspect]
     Indication: LEUKAEMIA RECURRENT PROPHYLAXIS
     Route: 037
     Dates: start: 19950801, end: 19970501
  12. ENOCITABINE [Suspect]
     Indication: T-CELL TYPE ACUTE LEUKAEMIA
     Dates: start: 19950801, end: 19970501
  13. HYDROCORTISONE SODIUM SUCCINATE [Suspect]
     Indication: LEUKAEMIA RECURRENT PROPHYLAXIS
     Route: 037
     Dates: start: 19950801, end: 19970501
  14. RADIOTHERAPY [Suspect]
     Indication: LEUKAEMIA RECURRENT PROPHYLAXIS
     Dates: start: 19950801, end: 19970501

REACTIONS (1)
  - MUCOEPIDERMOID CARCINOMA [None]
